FAERS Safety Report 9197723 (Version 2)
Quarter: 2013Q2

REPORT INFORMATION
  Report Type: Spontaneous
  Country: US (occurrence: US)
  Receive Date: 20130328
  Receipt Date: 20130605
  Transmission Date: 20140414
  Serious: Yes (Hospitalization, Other)
  Sender: FDA-Public Use
  Company Number: US-BAYER-2013-035775

PATIENT
  Age: 41 Year
  Sex: Female

DRUGS (13)
  1. YAZ [Suspect]
     Dosage: UNK
     Dates: start: 200609, end: 20100609
  2. YASMIN [Suspect]
     Dosage: UNK
     Dates: start: 200609
  3. OCELLA [Suspect]
  4. PERCOCET [Concomitant]
     Indication: PAIN
  5. NEURONTIN [Concomitant]
  6. VITAMIN C [Concomitant]
  7. RESTASIS [Concomitant]
  8. XANAX [Concomitant]
  9. ZOLOFT [Concomitant]
  10. DEMEROL [Concomitant]
  11. VISTARIL [Concomitant]
  12. CYCLOSPORINE [Concomitant]
     Route: 047
  13. MIDRIN [Concomitant]
     Indication: MIGRAINE

REACTIONS (7)
  - Pulmonary embolism [None]
  - Deep vein thrombosis [None]
  - Deep vein thrombosis [None]
  - Thrombophlebitis superficial [None]
  - Pain [None]
  - Injury [None]
  - Pain [None]
